FAERS Safety Report 5983645-7 (Version None)
Quarter: 2008Q4

REPORT INFORMATION
  Report Type: 
  Country: None (occurrence: None)
  Receive Date: 20081208
  Receipt Date: 20081125
  Transmission Date: 20090506
  Serious: Yes (Disabling)
  Sender: FDA-Public Use
  Company Number: US-MERCK-0810USA04907

PATIENT
  Age: 77 Year
  Sex: Female
  Weight: 57 kg

DRUGS (5)
  1. FOSAMAX [Suspect]
     Indication: OSTEOPENIA
     Route: 048
     Dates: start: 20080918, end: 20080919
  2. SINEMET [Concomitant]
     Indication: PARKINSON'S DISEASE
     Route: 048
  3. MIRAPEX [Concomitant]
     Indication: PARKINSON'S DISEASE
     Route: 065
     Dates: end: 20081104
  4. LUNESTA [Concomitant]
     Indication: INSOMNIA
     Route: 048
  5. MACROBID [Concomitant]
     Indication: URINARY TRACT INFECTION
     Route: 065

REACTIONS (2)
  - BACK PAIN [None]
  - MYALGIA [None]
